FAERS Safety Report 4350254-5 (Version None)
Quarter: 2004Q2

REPORT INFORMATION
  Report Type: 
  Country: None (occurrence: None)
  Receive Date: 20040427
  Receipt Date: 20030408
  Transmission Date: 20050107
  Serious: No
  Sender: FDA-Public Use
  Company Number: 000486

PATIENT
  Age: 63 Year
  Sex: Male
  Weight: 94.3 kg

DRUGS (6)
  1. ZEVALIN [Suspect]
     Indication: NON-HODGKIN'S LYMPHOMA
     Dosage: SINGLE, RITUXAN DOSE 1, INTRAVENOUS
     Route: 042
     Dates: start: 20020514, end: 20020514
  2. ZEVALIN [Suspect]
     Dosage: SINGLE, IN-[111] ZEVALIN, INTRAVENOUS
     Route: 042
     Dates: start: 20020514, end: 20020514
  3. ZEVALIN [Suspect]
     Dosage: SINGLE, RITUXAN DOSE 2, INTRAVENOUS
     Route: 042
     Dates: start: 20020521, end: 20020521
  4. ZEVALIN [Suspect]
     Dosage: SINGLE, Y-[90] ZEVALIN, INTRAVENOUS
     Route: 042
     Dates: start: 20020521, end: 20020521
  5. ASPIRINA NIFANTIL (ACETYLSALICYCLIC ACID) [Concomitant]
  6. GLUCOTROL XL [Concomitant]

REACTIONS (2)
  - DISEASE PROGRESSION [None]
  - PANCYTOPENIA [None]
